FAERS Safety Report 8433468 (Version 3)
Quarter: 2013Q2

REPORT INFORMATION
  Report Type: Spontaneous
  Country: US (occurrence: US)
  Receive Date: 20120229
  Receipt Date: 20130517
  Transmission Date: 20140414
  Serious: Yes (Other)
  Sender: FDA-Public Use
  Company Number: US-PFIZER INC-2012052128

PATIENT
  Age: 82 Year
  Sex: Male
  Weight: 86.17 kg

DRUGS (11)
  1. LIPITOR [Suspect]
     Indication: BLOOD CHOLESTEROL INCREASED
     Dosage: 80 MG, 1X/DAY
     Route: 048
  2. LANTUS [Concomitant]
     Dosage: 14 UNITS, UNK
  3. METOPROLOL [Concomitant]
     Dosage: UNK
  4. LASIX [Concomitant]
     Dosage: UNK
  5. CITALOPRAM [Concomitant]
     Dosage: UNK
  6. FERROUS SULFATE [Concomitant]
     Indication: ANAEMIA
     Dosage: UNK
  7. VITAMIN B12 [Concomitant]
     Dosage: UNK
  8. VITAMIN D [Concomitant]
     Dosage: UNK
  9. VITAMIN C [Concomitant]
     Dosage: UNK
  10. ECOTRIN [Concomitant]
     Indication: ANTICOAGULANT THERAPY
     Dosage: 81 MG, UNK
  11. CENTRUM SILVER [Concomitant]
     Dosage: UNK

REACTIONS (3)
  - Prostate cancer [Unknown]
  - Pain [Unknown]
  - Arthralgia [Unknown]
